FAERS Safety Report 7750173-8 (Version None)
Quarter: 2011Q3

REPORT INFORMATION
  Report Type: 
  Country: None (occurrence: None)
  Receive Date: 20110914
  Receipt Date: 20110914
  Transmission Date: 20111222
  Serious: Yes (Other)
  Sender: FDA-Public Use
  Company Number: None

PATIENT
  Age: 56 Year
  Sex: Male
  Weight: 74.842 kg

DRUGS (1)
  1. EFFIENT [Suspect]
     Indication: CORONARY ARTERIAL STENT INSERTION
     Dosage: 1
     Route: 048
     Dates: start: 20110826, end: 20110913

REACTIONS (11)
  - PAIN [None]
  - RENAL PAIN [None]
  - PRURITUS [None]
  - NAUSEA [None]
  - SWELLING [None]
  - ERYTHEMA [None]
  - DISCOMFORT [None]
  - ASTHENIA [None]
  - FATIGUE [None]
  - MOUTH HAEMORRHAGE [None]
  - GASTROINTESTINAL PAIN [None]
